FAERS Safety Report 10484462 (Version 1)
Quarter: 2014Q3

REPORT INFORMATION
  Report Type: Spontaneous
  Country: US (occurrence: US)
  Receive Date: 20140930
  Receipt Date: 20140930
  Transmission Date: 20150326
  Serious: No
  Sender: FDA-Public Use
  Company Number: US-SHIRE-US201406058

PATIENT
  Age: 53 Year
  Sex: Female
  Weight: 44.44 kg

DRUGS (1)
  1. LIALDA [Suspect]
     Active Substance: MESALAMINE
     Indication: COLITIS ULCERATIVE
     Dosage: 2.4 G (2 TABLETS), UNKNOWN (A DAY)
     Route: 048
     Dates: start: 201408, end: 20140906

REACTIONS (11)
  - Frequent bowel movements [Recovering/Resolving]
  - Flatulence [Recovering/Resolving]
  - Condition aggravated [Not Recovered/Not Resolved]
  - Haematochezia [Recovering/Resolving]
  - Anxiety [Unknown]
  - Frustration [Unknown]
  - Food intolerance [Unknown]
  - Iron deficiency [Unknown]
  - Rectal haemorrhage [Not Recovered/Not Resolved]
  - Stress [Unknown]
  - Headache [Recovered/Resolved]

NARRATIVE: CASE EVENT DATE: 2014
